FAERS Safety Report 8482791 (Version 7)
Quarter: 2012Q4

REPORT INFORMATION
  Report Type: 
  Country: US (occurrence: US)
  Receive Date: 20120329
  Receipt Date: 20120926
  Transmission Date: 20130627
  Serious: Yes (Hospitalization, Disabling, Other)
  Sender: FDA-Public Use
  Company Number: US-009507513-1203USA03347

PATIENT

DRUGS (28)
  1. FOSAMAX [Suspect]
     Indication: OSTEOPOROSIS
     Dosage: 70 mg, qw
     Route: 048
     Dates: start: 200405, end: 2008
  2. FOSAMAX [Suspect]
     Indication: OSTEOPENIA
  3. FOSAMAX [Suspect]
     Indication: OSTEOPENIA
     Dosage: 70 mg, qw
     Route: 048
     Dates: start: 2008, end: 201010
  4. FOSAMAX [Suspect]
     Indication: OSTEOPOROSIS
  5. LIPITOR [Concomitant]
     Indication: BLOOD CHOLESTEROL
     Dosage: 20 mg, qd
     Dates: start: 1998
  6. ADVAIR [Concomitant]
     Indication: HYPERSENSITIVITY
     Dosage: UNK UNK, PRN
     Dates: start: 2004
  7. ALBUTEROL [Concomitant]
     Indication: ASTHMA
     Dosage: UNK UNK, PRN
     Dates: start: 2004
  8. AMOXICILLIN [Concomitant]
     Indication: UPPER RESPIRATORY TRACT INFECTION
     Dates: start: 2002, end: 2009
  9. ARAVA [Concomitant]
     Indication: ARTHRITIS
     Dosage: 20 mg, qd
     Dates: start: 2001
  10. CELEBREX [Concomitant]
     Indication: ARTHRITIS
     Dosage: 200 mg, qd
     Dates: start: 2001, end: 2008
  11. ASTELIN (AZELASTINE HYDROCHLORIDE) [Concomitant]
     Indication: HYPERSENSITIVITY
     Dates: start: 2004
  12. CLARITIN-D [Concomitant]
     Indication: HYPERSENSITIVITY
     Route: 048
     Dates: start: 2002, end: 2009
  13. COMBIVENT [Concomitant]
     Indication: ASTHMA
     Dates: start: 2003, end: 2009
  14. FLONASE [Concomitant]
     Indication: HYPERSENSITIVITY
     Dates: start: 2002, end: 2002
  15. FLOVENT [Concomitant]
     Dates: start: 2003, end: 2009
  16. PHENERGAN WITH CODEINE [Concomitant]
     Indication: UPPER RESPIRATORY TRACT INFECTION
     Dates: start: 2002, end: 2009
  17. PROVENTIL [Concomitant]
     Indication: ASTHMA
     Dates: start: 2003, end: 2009
  18. ROBITUSSIN [Concomitant]
     Indication: UPPER RESPIRATORY TRACT INFECTION
     Dates: start: 2002
  19. SINGULAIR [Concomitant]
     Dosage: UNK UNK, PRN
     Route: 048
     Dates: start: 2002, end: 2007
  20. TILADE [Concomitant]
     Indication: ASTHMA
     Dates: start: 2003, end: 2009
  21. ATREXEL [Concomitant]
     Dosage: 10 mg, bid
     Dates: start: 200212
  22. PLAQUENIL [Concomitant]
     Indication: SYNOVITIS
     Dosage: 200 mg, qd
  23. METICORTEN [Concomitant]
     Dosage: 2.5-5
     Dates: start: 200201
  24. LEFLUNOMIDE [Concomitant]
     Dosage: 20 mg, qd
  25. CALCIUM (UNSPECIFIED) (+) MAGNESIUM (UNSPECIFIED) (+) ZINC (UNSPECIFIE [Concomitant]
     Dosage: UNK, UNK
     Dates: start: 2003
  26. ASCORBIC ACID [Concomitant]
     Dosage: 500 mg, UNK
     Dates: start: 2003
  27. CALCIUM (UNSPECIFIED) (+) VITAMIN D (UNSPECIFIED) [Concomitant]
     Dates: start: 2003
  28. OMEGA-3 MARINE TRIGLYCERIDES [Concomitant]
     Dosage: UNK
     Dates: start: 1994

REACTIONS (87)
  - Chronic obstructive pulmonary disease [Not Recovered/Not Resolved]
  - Electrocardiogram ST-T change [Unknown]
  - Intervertebral disc degeneration [Unknown]
  - Tenosynovitis [Unknown]
  - Device breakage [Unknown]
  - Rotator cuff syndrome [Recovering/Resolving]
  - Fracture delayed union [Unknown]
  - Tooth disorder [Unknown]
  - Bursitis [Unknown]
  - Arthropathy [Unknown]
  - Tension headache [Unknown]
  - Coronary artery disease [Unknown]
  - Rheumatoid arthritis [Unknown]
  - Cerumen impaction [Unknown]
  - Carotid bruit [Unknown]
  - Pollakiuria [Unknown]
  - Viral infection [Unknown]
  - Cellulitis [Unknown]
  - Dermatitis [Recovering/Resolving]
  - Glucose tolerance impaired [Unknown]
  - Thyroid disorder [Unknown]
  - Cholelithiasis [Unknown]
  - Cholecystitis [Unknown]
  - Staphylococcal infection [Recovering/Resolving]
  - Joint swelling [Unknown]
  - Dizziness [Not Recovered/Not Resolved]
  - Erythema [Recovered/Resolved]
  - Drug ineffective [Unknown]
  - Rash [Unknown]
  - Dehydration [Unknown]
  - Asthenia [Unknown]
  - Bile duct obstruction [Unknown]
  - Nephropathy [Unknown]
  - Hepatic cyst [Unknown]
  - Renal cyst [Unknown]
  - Palpitations [Unknown]
  - Supraventricular tachycardia [Recovering/Resolving]
  - Upper respiratory tract infection [Unknown]
  - Anxiety [Unknown]
  - Flatulence [Unknown]
  - Gastrooesophageal reflux disease [Unknown]
  - Anaemia [Unknown]
  - Vertigo [Unknown]
  - Oedema peripheral [Unknown]
  - Abdominal pain [Unknown]
  - Nausea [Unknown]
  - Femur fracture [Unknown]
  - Open reduction of fracture [Unknown]
  - Multiple injuries [None]
  - Pain [None]
  - Emotional distress [None]
  - Mental disorder [None]
  - Femur fracture [Not Recovered/Not Resolved]
  - Cholecystectomy [Unknown]
  - Angina unstable [Unknown]
  - Adverse event [Unknown]
  - Atrial fibrillation [Unknown]
  - Myocardial ischaemia [Unknown]
  - Fracture nonunion [Unknown]
  - Gallbladder disorder [Unknown]
  - Tachycardia [Unknown]
  - Ventricular extrasystoles [Unknown]
  - Cataract [Unknown]
  - Renal impairment [Unknown]
  - Uterine dilation and curettage [Unknown]
  - Carotid artery stenosis [Unknown]
  - Adenoidectomy [Unknown]
  - Tonsillectomy [Unknown]
  - Osteoporosis [Not Recovered/Not Resolved]
  - Stress fracture [Not Recovered/Not Resolved]
  - Femur fracture [Not Recovered/Not Resolved]
  - Blood pressure increased [Unknown]
  - Chest pain [Unknown]
  - Low turnover osteopathy [Not Recovered/Not Resolved]
  - Diabetes mellitus [Unknown]
  - Hypertension [Unknown]
  - Atrial fibrillation [Unknown]
  - Osteomyelitis chronic [Unknown]
  - Urinary tract disorder [Unknown]
  - Cardiac disorder [Unknown]
  - Fatigue [Unknown]
  - Spondyloarthropathy [Unknown]
  - Bursitis [Unknown]
  - Lumbar spinal stenosis [Unknown]
  - Liver function test abnormal [Not Recovered/Not Resolved]
  - Drug interaction [Unknown]
  - Dysaesthesia [Unknown]
